FAERS Safety Report 13227419 (Version 1)
Quarter: 2017Q1

REPORT INFORMATION
  Report Type: Other
  Country: US (occurrence: US)
  Receive Date: 20170213
  Receipt Date: 20170213
  Transmission Date: 20170428
  Serious: Yes (Hospitalization)
  Sender: FDA-Public Use
  Company Number: US-SHIRE-US201702331

PATIENT
  Age: 63 Year
  Sex: Female

DRUGS (2)
  1. LIALDA [Suspect]
     Active Substance: MESALAMINE
     Indication: PRODUCT USED FOR UNKNOWN INDICATION
     Dosage: 1.2 G, UNKNOWN
     Route: 048
     Dates: start: 20160310, end: 201701
  2. LIALDA [Suspect]
     Active Substance: MESALAMINE
     Dosage: 2.4 G, UNKNOWN
     Route: 048
     Dates: start: 201701

REACTIONS (3)
  - Diarrhoea [Unknown]
  - Drug ineffective [Recovering/Resolving]
  - Condition aggravated [Recovering/Resolving]

NARRATIVE: CASE EVENT DATE: 20170116
